FAERS Safety Report 6046314-3 (Version None)
Quarter: 2009Q1

REPORT INFORMATION
  Report Type: 
  Country: None (occurrence: None)
  Receive Date: 20090122
  Receipt Date: 20090115
  Transmission Date: 20090719
  Serious: Yes (Other)
  Sender: FDA-Public Use
  Company Number: CA-ASTRAZENECA-2009UW01466

PATIENT
  Age: 61 Year
  Sex: Male

DRUGS (1)
  1. XYLOCAINE [Suspect]

REACTIONS (5)
  - BLOOD PRESSURE DECREASED [None]
  - HEART RATE DECREASED [None]
  - HYPERHIDROSIS [None]
  - NAUSEA [None]
  - PALLOR [None]
